FAERS Safety Report 17486898 (Version 1)
Quarter: 2020Q1

REPORT INFORMATION
  Report Type: Spontaneous
  Country: NL (occurrence: NL)
  Receive Date: 20200303
  Receipt Date: 20200303
  Transmission Date: 20200409
  Serious: Yes (Other)
  Sender: FDA-Public Use
  Company Number: NL-ACCORD-174697

PATIENT
  Age: 59 Year
  Sex: Female
  Weight: 58 kg

DRUGS (1)
  1. PRASUGREL. [Suspect]
     Active Substance: PRASUGREL
     Indication: ANTICOAGULANT THERAPY
     Dosage: 10 MG (MILLIGRAM), 1 TIME PER DAY, 1
     Dates: start: 20200111, end: 20200115

REACTIONS (3)
  - Therapeutic response unexpected [Unknown]
  - Paraesthesia [Recovered/Resolved]
  - Facial paralysis [Recovered/Resolved]

NARRATIVE: CASE EVENT DATE: 20200115
